FAERS Safety Report 24714224 (Version 2)
Quarter: 2025Q1

REPORT INFORMATION
  Report Type: Spontaneous
  Country: MX (occurrence: MX)
  Receive Date: 20241209
  Receipt Date: 20250106
  Transmission Date: 20250408
  Serious: Yes (Other)
  Sender: BAUSCH AND LOMB
  Company Number: MX-BAUSCHBL-2024BNL038519

PATIENT
  Age: 80 Year
  Sex: Female

DRUGS (1)
  1. VYZULTA [Suspect]
     Active Substance: LATANOPROSTENE BUNOD
     Indication: Glaucoma
     Dosage: ONE DROP IN BOTH EYES AT NIGHT
     Route: 047
     Dates: start: 20240710, end: 20240730

REACTIONS (2)
  - Hallucination, visual [Recovered/Resolved]
  - Charles Bonnet syndrome [Recovered/Resolved]

NARRATIVE: CASE EVENT DATE: 20240710
